FAERS Safety Report 9857195 (Version 1)
Quarter: 2014Q1

REPORT INFORMATION
  Report Type: Spontaneous
  Country: MX (occurrence: MX)
  Receive Date: 20140130
  Receipt Date: 20140130
  Transmission Date: 20141002
  Serious: Yes (Other)
  Sender: FDA-Public Use
  Company Number: PHHY2014MX009379

PATIENT
  Age: 84 Year
  Sex: Male

DRUGS (10)
  1. ONBREZ [Suspect]
     Indication: CHRONIC OBSTRUCTIVE PULMONARY DISEASE
     Dosage: 300 UG, DAILY
     Route: 055
  2. CALCIUM [Concomitant]
     Indication: OSTEOPOROSIS
     Dosage: 4 UKN, DAILY
  3. OMEPRAZOLE [Concomitant]
     Indication: ABDOMINAL DISCOMFORT
     Dosage: 2 UKN, DAILY
  4. CRESTOR [Concomitant]
     Indication: HYPERTENSION
     Dosage: 1 UKN, DAILY
  5. SERETIDE [Concomitant]
     Indication: LUNG DISORDER
     Dosage: 2 UKN, DAILY
  6. SENOKOT//SENNOSIDE A+B [Concomitant]
     Indication: DYSPEPSIA
     Dosage: 1 UKN, DAILY
  7. TYLENOL [Concomitant]
     Indication: PAIN
     Dosage: UNK (1 OR 3 ) DAILY
  8. ASPIRIN [Concomitant]
     Indication: CARDIAC DISORDER
     Dosage: 1 UKN, DAILY
  9. OCUVITE ADULT 50+                  /06822201/ [Concomitant]
     Indication: EYE DISORDER
     Dosage: 1 UKN, DAILY
  10. TENORMIN [Concomitant]
     Indication: CARDIAC DISORDER
     Dosage: 0.5 UKN, DAILY

REACTIONS (3)
  - Prostatic disorder [Recovered/Resolved]
  - Renal cyst [Recovered/Resolved]
  - Anaemia [Recovered/Resolved]
